FAERS Safety Report 6533025-0 (Version None)
Quarter: 2010Q1

REPORT INFORMATION
  Report Type: 
  Country: None (occurrence: None)
  Receive Date: 20100105
  Receipt Date: 20091223
  Transmission Date: 20100710
  Serious: Yes (Death, Life-Threatening, Hospitalization, Other)
  Sender: FDA-Public Use
  Company Number: DSA_41928-2009

PATIENT
  Sex: Male

DRUGS (7)
  1. XENAZINE [Suspect]
     Indication: DYSTONIA
     Dosage: SEE IMAGE
     Dates: start: 20090730, end: 20090801
  2. XENAZINE [Suspect]
     Indication: DYSTONIA
     Dosage: SEE IMAGE
     Dates: start: 20090801, end: 20090801
  3. XENAZINE [Suspect]
     Indication: DYSTONIA
     Dosage: SEE IMAGE
     Dates: start: 20090801, end: 20090929
  4. XENAZINE [Suspect]
     Indication: DYSTONIA
     Dosage: SEE IMAGE
     Dates: start: 20090930, end: 20091011
  5. VALIUM [Suspect]
     Indication: MUSCLE SPASTICITY
     Dosage: 6 MG TID, 8 MG QID
     Dates: end: 20090801
  6. RESERPINE [Concomitant]
  7. BACLOFEN [Concomitant]

REACTIONS (15)
  - ABDOMINAL HERNIA [None]
  - CONVULSION [None]
  - DISCOMFORT [None]
  - DRUG WITHDRAWAL SYNDROME [None]
  - EYE DISORDER [None]
  - EYE ROLLING [None]
  - FEEDING TUBE COMPLICATION [None]
  - LIP DISCOLOURATION [None]
  - MYDRIASIS [None]
  - PERITONITIS [None]
  - PNEUMONIA ASPIRATION [None]
  - RASH [None]
  - RESPIRATORY ARREST [None]
  - SKIN DISCOLOURATION [None]
  - STAPHYLOCOCCAL INFECTION [None]
